FAERS Safety Report 9477207 (Version 2)
Quarter: 2013Q3

REPORT INFORMATION
  Report Type: Spontaneous
  Country: CN (occurrence: CN)
  Receive Date: 20130826
  Receipt Date: 20130903
  Transmission Date: 20140515
  Serious: Yes (Death)
  Sender: FDA-Public Use
  Company Number: CN-BAYER-2013-102738

PATIENT
  Age: 70 Year
  Sex: Male
  Weight: 64.85 kg

DRUGS (16)
  1. BAYASPIRIN [Suspect]
     Indication: CEREBRAL INFARCTION
     Dosage: 0.1 G, QD
     Route: 048
     Dates: start: 20130813, end: 20130816
  2. ARGATROBAN [Suspect]
     Indication: CEREBRAL INFARCTION
     Dosage: 20 MG, QD
     Route: 041
     Dates: start: 20130816, end: 20130816
  3. DEFIBRASE [Suspect]
     Indication: CEREBRAL INFARCTION
     Dosage: 10 IU, ONCE
     Dates: start: 20130813, end: 20130813
  4. CITICOLINE [Concomitant]
     Dosage: 0.75 G, QD
     Route: 041
     Dates: start: 20130813, end: 20130817
  5. MECOBALAMIN [Concomitant]
     Dosage: 0.5 MG, QD
     Route: 041
     Dates: start: 20130814, end: 20130816
  6. NICERGOLINE [Concomitant]
     Dosage: 30 MG, QD
     Route: 048
     Dates: start: 20130813, end: 20130816
  7. DIHYDROERGOTOXINE MESILATE [Concomitant]
     Dosage: 2.5 MG, BID
     Route: 048
     Dates: start: 20130814, end: 20130816
  8. POTASSIUM CHLORIDE [Concomitant]
     Indication: MINERAL SUPPLEMENTATION
     Dosage: 0.5 G, TID
     Route: 048
     Dates: start: 20130815, end: 20130816
  9. SODIUM CHLORIDE INJECTION [Concomitant]
     Indication: MEDICATION DILUTION
     Dosage: 250 ML, QD
     Route: 041
     Dates: start: 20130813, end: 20130821
  10. SODIUM CHLORIDE INJECTION [Concomitant]
     Indication: MEDICATION DILUTION
     Dosage: 100 ML, QD
     Route: 041
     Dates: start: 20130813, end: 20130821
  11. PIRACETAM [Concomitant]
     Dosage: 20 G, QD
     Route: 041
     Dates: start: 20130813, end: 20130816
  12. FLUVASTATIN [Concomitant]
     Indication: PROPHYLAXIS
     Dosage: 40 MG, QD
     Route: 048
     Dates: start: 20130813, end: 20130816
  13. LEVAMLODIPINE BESILATE [Concomitant]
     Indication: BLOOD PRESSURE ABNORMAL
     Dosage: 2.5 MG, QD
     Route: 048
     Dates: start: 20130813, end: 20130816
  14. CANDESARTAN CILEXETIL [Concomitant]
     Indication: BLOOD PRESSURE DECREASED
     Dosage: 8 MG, QD
     Route: 048
     Dates: start: 20130813, end: 20130816
  15. CALCITRIOL [Concomitant]
     Dosage: 0.25 ?G, QD
     Route: 048
     Dates: start: 20130813, end: 20130816
  16. VALSARTAN [Concomitant]
     Indication: HYPERTENSION
     Dosage: 80 MG, QD

REACTIONS (5)
  - Cerebral haemorrhage [Fatal]
  - Agitation [Fatal]
  - Agnosia [Fatal]
  - Loss of consciousness [Fatal]
  - Coma [Fatal]
